FAERS Safety Report 22316480 (Version 1)
Quarter: 2023Q2

REPORT INFORMATION
  Report Type: Spontaneous
  Country: PL (occurrence: PL)
  Receive Date: 20230513
  Receipt Date: 20230513
  Transmission Date: 20230721
  Serious: Yes (Hospitalization)
  Sender: FDA-Public Use
  Company Number: PL-JNJFOC-20230459216

PATIENT
  Age: 64 Year
  Sex: Male
  Weight: 102 kg

DRUGS (6)
  1. ABIRATERONE ACETATE [Suspect]
     Active Substance: ABIRATERONE ACETATE
     Indication: Hormone-dependent prostate cancer
     Dosage: 1000 MG, QD
     Route: 048
     Dates: start: 20221117
  2. PREDNISOLONE [Suspect]
     Active Substance: PREDNISOLONE
     Indication: Hormone-dependent prostate cancer
     Dosage: 5 MG
     Route: 048
     Dates: start: 20221117
  3. ABEMACICLIB [Suspect]
     Active Substance: ABEMACICLIB
     Indication: Hormone-dependent prostate cancer
     Dosage: UNK
     Route: 065
     Dates: start: 20221117
  4. OXYDOLOR [Concomitant]
     Indication: Bone pain
     Dosage: UNK
     Route: 065
     Dates: start: 20220930
  5. TRIPTORELIN [Concomitant]
     Active Substance: TRIPTORELIN
     Indication: Antiandrogen therapy
     Dosage: UNK
     Route: 065
     Dates: start: 20221011
  6. PANTOPRAZOLE SODIUM [Concomitant]
     Active Substance: PANTOPRAZOLE SODIUM
     Indication: Prophylaxis
     Dosage: UNK
     Route: 065
     Dates: start: 2017

REACTIONS (2)
  - Anaemia [Recovering/Resolving]
  - Hypokalaemia [Recovering/Resolving]

NARRATIVE: CASE EVENT DATE: 20230411
